FAERS Safety Report 10768674 (Version 1)
Quarter: 2015Q1

REPORT INFORMATION
  Report Type: Spontaneous
  Country: US (occurrence: US)
  Receive Date: 20150206
  Receipt Date: 20150206
  Transmission Date: 20150721
  Serious: No
  Sender: FDA-Public Use
  Company Number: US-009507513-1502USA001378

PATIENT

DRUGS (2)
  1. ITRACONAZOLE. [Concomitant]
     Active Substance: ITRACONAZOLE
  2. POSACONAZOLE [Suspect]
     Active Substance: POSACONAZOLE
     Indication: INFECTION
     Route: 048

REACTIONS (1)
  - Drug ineffective [Recovering/Resolving]
